FAERS Safety Report 11115512 (Version 1)
Quarter: 2015Q2

REPORT INFORMATION
  Report Type: Spontaneous
  Country: IN (occurrence: IN)
  Receive Date: 20150515
  Receipt Date: 20150515
  Transmission Date: 20150821
  Serious: Yes (Hospitalization, Other)
  Sender: FDA-Public Use
  Company Number: IN-AUROBINDO-AUR-APL-2015-04252

PATIENT
  Age: 31 Year
  Sex: Female

DRUGS (1)
  1. AURO - AMLODIPINE TABLETS 5 MG [Suspect]
     Active Substance: AMLODIPINE BESYLATE
     Indication: PRODUCT USED FOR UNKNOWN INDICATION
     Dosage: 40 DF, UNK
     Route: 065

REACTIONS (13)
  - Blood pressure decreased [Recovering/Resolving]
  - Dyspnoea [Recovering/Resolving]
  - Heart rate increased [Recovering/Resolving]
  - Pulmonary oedema [Recovering/Resolving]
  - Hypotension [Recovering/Resolving]
  - Overdose [Recovering/Resolving]
  - Sinus tachycardia [Recovering/Resolving]
  - Respiratory distress [Recovering/Resolving]
  - Blood gases abnormal [Recovering/Resolving]
  - Vomiting [Recovering/Resolving]
  - Chest X-ray abnormal [Recovering/Resolving]
  - Toxicity to various agents [Recovering/Resolving]
  - Oxygen saturation decreased [Recovering/Resolving]
